FAERS Safety Report 7641893-4 (Version None)
Quarter: 2011Q3

REPORT INFORMATION
  Report Type: 
  Country: None (occurrence: None)
  Receive Date: 20110728
  Receipt Date: 20110708
  Transmission Date: 20111222
  Serious: Yes (Death, Hospitalization)
  Sender: FDA-Public Use
  Company Number: IN-ROCHE-792490

PATIENT
  Sex: Female
  Weight: 78 kg

DRUGS (4)
  1. PYRIDOXINE HCL [Concomitant]
     Dates: start: 20091116, end: 20091116
  2. ANTIEMETICS [Concomitant]
     Dates: start: 20100617, end: 20100630
  3. CAPECITABINE [Suspect]
     Indication: BREAST CANCER
     Dosage: CYCLICAL, FILM COATED TABLET (CYCLE 1-11), 1250 MG/M2 TWICE DAILY) FROM D1 TO D14 EVERY 3 WEEKS
     Route: 048
     Dates: start: 20091116, end: 20100717
  4. CALCIMAX [Concomitant]
     Dates: start: 20100121, end: 20100630

REACTIONS (3)
  - CARDIAC FAILURE [None]
  - CEREBRAL ARTERY OCCLUSION [None]
  - HEMIPARESIS [None]
